FAERS Safety Report 15889364 (Version 3)
Quarter: 2019Q1

REPORT INFORMATION
  Report Type: Spontaneous
  Country: US (occurrence: US)
  Receive Date: 20190130
  Receipt Date: 20190327
  Transmission Date: 20190417
  Serious: No
  Sender: FDA-Public Use
  Company Number: US-ASTRAZENECA-2019SE12425

PATIENT
  Age: 20730 Day
  Sex: Female
  Weight: 67.1 kg

DRUGS (10)
  1. PULMICORT FLEXHALER [Suspect]
     Active Substance: BUDESONIDE
     Indication: NASOPHARYNGITIS
     Dosage: 90 MCG TWO PUFFS IN THE AM
     Route: 055
     Dates: start: 20181205
  2. PULMICORT FLEXHALER [Suspect]
     Active Substance: BUDESONIDE
     Indication: NASOPHARYNGITIS
     Dosage: 180 MCG,SHE TOOK ONE PUFF
     Route: 055
     Dates: start: 20190109
  3. PREDNISONE. [Concomitant]
     Active Substance: PREDNISONE
  4. PULMICORT FLEXHALER [Suspect]
     Active Substance: BUDESONIDE
     Indication: NASOPHARYNGITIS
     Dosage: 180 MCG, TWO PUFFS IN AM AND PM
     Route: 055
     Dates: start: 20181205, end: 20190101
  5. PULMICORT FLEXHALER [Suspect]
     Active Substance: BUDESONIDE
     Indication: ASTHMA
     Dosage: 180 MCG,SHE TOOK ONE PUFF
     Route: 055
     Dates: start: 20190109
  6. PULMICORT FLEXHALER [Suspect]
     Active Substance: BUDESONIDE
     Indication: BRONCHITIS
     Dosage: 180 MCG, TWO PUFFS IN AM AND PM
     Route: 055
     Dates: start: 20181205, end: 20190101
  7. PULMICORT FLEXHALER [Suspect]
     Active Substance: BUDESONIDE
     Indication: ASTHMA
     Dosage: 90 MCG TWO PUFFS IN THE AM
     Route: 055
     Dates: start: 20181205
  8. PULMICORT FLEXHALER [Suspect]
     Active Substance: BUDESONIDE
     Indication: ASTHMA
     Dosage: 180 MCG, TWO PUFFS IN AM AND PM
     Route: 055
     Dates: start: 20181205, end: 20190101
  9. PULMICORT FLEXHALER [Suspect]
     Active Substance: BUDESONIDE
     Indication: BRONCHITIS
     Dosage: 90 MCG TWO PUFFS IN THE AM
     Route: 055
     Dates: start: 20181205
  10. PULMICORT FLEXHALER [Suspect]
     Active Substance: BUDESONIDE
     Indication: BRONCHITIS
     Dosage: 180 MCG,SHE TOOK ONE PUFF
     Route: 055
     Dates: start: 20190109

REACTIONS (13)
  - Dyspnoea [Unknown]
  - Muscle spasms [Recovered/Resolved]
  - Muscle contracture [Unknown]
  - Off label use [Recovered/Resolved]
  - Hot flush [Not Recovered/Not Resolved]
  - Paraesthesia [Recovered/Resolved]
  - Dizziness [Unknown]
  - Nausea [Unknown]
  - Cough [Not Recovered/Not Resolved]
  - Product use in unapproved indication [Unknown]
  - Overdose [Unknown]
  - Product quality issue [Unknown]
  - Sensory loss [Unknown]

NARRATIVE: CASE EVENT DATE: 20181205
